FAERS Safety Report 9459293 (Version 15)
Quarter: 2018Q3

REPORT INFORMATION
  Report Type: Report from Study
  Country: CA (occurrence: CA)
  Receive Date: 20130815
  Receipt Date: 20180831
  Transmission Date: 20181010
  Serious: Yes (Other)
  Sender: FDA-Public Use
  Company Number: CA-ROCHE-1162770

PATIENT
  Age: 51 Year
  Sex: Female
  Weight: 120 kg

DRUGS (18)
  1. SYNTHROID [Concomitant]
     Active Substance: LEVOTHYROXINE SODIUM
  2. ACTEMRA [Suspect]
     Active Substance: TOCILIZUMAB
     Route: 042
     Dates: start: 20101229
  3. PLAQUENIL [Suspect]
     Active Substance: HYDROXYCHLOROQUINE SULFATE
     Indication: PRODUCT USED FOR UNKNOWN INDICATION
     Route: 048
  4. GARLIC. [Concomitant]
     Active Substance: GARLIC
  5. METHOTREXATE. [Concomitant]
     Active Substance: METHOTREXATE
     Route: 065
  6. ACTEMRA [Suspect]
     Active Substance: TOCILIZUMAB
     Route: 042
     Dates: start: 20110927
  7. NAPROSYN [Concomitant]
     Active Substance: NAPROXEN
  8. ACTEMRA [Suspect]
     Active Substance: TOCILIZUMAB
     Route: 042
     Dates: start: 20120928
  9. VITAMIN B COMPLEX [Concomitant]
     Active Substance: CYANOCOBALAMIN\DEXPANTHENOL\NIACINAMIDE\PYRIDOXINE HYDROCHLORIDE\RIBOFLAVIN 5^-PHOSPHATE SODIUM\THIAMINE HYDROCHLORIDE\VITAMIN B COMPLEX
  10. ACTEMRA [Suspect]
     Active Substance: TOCILIZUMAB
     Route: 042
     Dates: start: 20170823
  11. FLEXERIL [Concomitant]
     Active Substance: CYCLOBENZAPRINE HYDROCHLORIDE
  12. SULFASALAZINE. [Concomitant]
     Active Substance: SULFASALAZINE
     Route: 048
  13. ACTEMRA [Suspect]
     Active Substance: TOCILIZUMAB
     Route: 042
     Dates: start: 20110601
  14. ACTEMRA [Suspect]
     Active Substance: TOCILIZUMAB
     Route: 042
     Dates: start: 20130122
  15. RITUXAN [Suspect]
     Active Substance: RITUXIMAB
     Indication: RHEUMATOID ARTHRITIS
     Route: 042
     Dates: start: 20080430, end: 20080930
  16. ACTEMRA [Suspect]
     Active Substance: TOCILIZUMAB
     Indication: RHEUMATOID ARTHRITIS
     Route: 042
     Dates: start: 20101130
  17. TYLENOL WITH CODEINE [Concomitant]
     Active Substance: ACETAMINOPHEN\CODEINE PHOSPHATE
  18. FOLIC ACID. [Concomitant]
     Active Substance: FOLIC ACID

REACTIONS (23)
  - Pneumonia [Not Recovered/Not Resolved]
  - Blood pressure diastolic increased [Unknown]
  - Synovitis [Recovering/Resolving]
  - Nasopharyngitis [Recovered/Resolved]
  - Weight increased [Unknown]
  - Blood pressure systolic abnormal [Unknown]
  - Drug intolerance [Unknown]
  - Poor venous access [Unknown]
  - Upper limb fracture [Recovering/Resolving]
  - Pharyngeal mass [Recovering/Resolving]
  - Hepatic enzyme increased [Unknown]
  - Osteoporosis [Unknown]
  - Blood pressure increased [Unknown]
  - Painful respiration [Unknown]
  - Joint swelling [Unknown]
  - Dyslipidaemia [Not Recovered/Not Resolved]
  - Arthralgia [Unknown]
  - Musculoskeletal stiffness [Unknown]
  - Cataract [Not Recovered/Not Resolved]
  - Fall [Unknown]
  - Cystitis [Not Recovered/Not Resolved]
  - Dry mouth [Recovering/Resolving]
  - Inflammation [Unknown]

NARRATIVE: CASE EVENT DATE: 2012
